FAERS Safety Report 19917146 (Version 6)
Quarter: 2021Q4

REPORT INFORMATION
  Report Type: Report from Study
  Country: US (occurrence: US)
  Receive Date: 20211005
  Receipt Date: 20211116
  Transmission Date: 20220303
  Serious: Yes (Hospitalization, Other)
  Sender: FDA-Public Use
  Company Number: US-INSMED, INC.-2021-09494-US

PATIENT
  Sex: Male

DRUGS (2)
  1. ARIKAYCE [Suspect]
     Active Substance: AMIKACIN
     Indication: Mycobacterium avium complex infection
     Dosage: 590 MILLIGRAM, QD
     Route: 055
     Dates: start: 20210909, end: 20210913
  2. ARIKAYCE [Suspect]
     Active Substance: AMIKACIN
     Dosage: HALF A DOSE
     Route: 055
     Dates: start: 20211012, end: 202110

REACTIONS (13)
  - Feeding disorder [Not Recovered/Not Resolved]
  - Dementia [Unknown]
  - Abnormal behaviour [Not Recovered/Not Resolved]
  - Dehydration [Unknown]
  - Pneumonia [Not Recovered/Not Resolved]
  - Asthenia [Not Recovered/Not Resolved]
  - Loss of personal independence in daily activities [Not Recovered/Not Resolved]
  - Diarrhoea [Unknown]
  - Dysphonia [Not Recovered/Not Resolved]
  - Therapy interrupted [Unknown]
  - Underdose [Unknown]
  - Intentional dose omission [Unknown]
  - Treatment noncompliance [Unknown]

NARRATIVE: CASE EVENT DATE: 20210101
